FAERS Safety Report 15371432 (Version 1)
Quarter: 2018Q3

REPORT INFORMATION
  Report Type: Spontaneous
  Country: US (occurrence: US)
  Receive Date: 20180905
  Receipt Date: 20180905
  Transmission Date: 20181010
  Serious: Yes (Death)
  Sender: FDA-Public Use
  Company Number: None

PATIENT
  Age: 78 Year
  Sex: Female

DRUGS (6)
  1. SUTENT [Suspect]
     Active Substance: SUNITINIB MALATE
     Indication: CARCINOID TUMOUR
     Route: 048
     Dates: start: 20180817
  2. LOSARTAN. [Concomitant]
     Active Substance: LOSARTAN
  3. IPRATROPIUM/ SOL ALBUTEROL [Concomitant]
     Active Substance: ALBUTEROL\IPRATROPIUM BROMIDE
  4. PANTOPRAZOLE [Concomitant]
     Active Substance: PANTOPRAZOLE
  5. LORAZEPAM. [Concomitant]
     Active Substance: LORAZEPAM
  6. VENTOLIN HFA AEROSOL [Concomitant]

REACTIONS (1)
  - Death [None]

NARRATIVE: CASE EVENT DATE: 20180831
